FAERS Safety Report 21912380 (Version 1)
Quarter: 2023Q1

REPORT INFORMATION
  Report Type: Spontaneous
  Country: US (occurrence: US)
  Receive Date: 20230125
  Receipt Date: 20230125
  Transmission Date: 20230417
  Serious: No
  Sender: FDA-Public Use
  Company Number: US-ALLERGAN-2226035US

PATIENT
  Age: 50 Year
  Sex: Female

DRUGS (11)
  1. BOTOX COSMETIC [Suspect]
     Active Substance: ONABOTULINUMTOXINA
     Indication: Skin wrinkling
     Dosage: 15 UNITS, SINGLE
     Route: 030
     Dates: start: 20210223, end: 20210223
  2. BOTOX COSMETIC [Suspect]
     Active Substance: ONABOTULINUMTOXINA
     Indication: Skin wrinkling
     Dosage: 5 UNITS, SINGLE
     Route: 030
     Dates: start: 20210209, end: 20210209
  3. BOTOX COSMETIC [Suspect]
     Active Substance: ONABOTULINUMTOXINA
     Indication: Skin wrinkling
     Dosage: 10 UNITS, SINGLE
     Route: 030
     Dates: start: 20210109, end: 20210109
  4. BOTOX COSMETIC [Suspect]
     Active Substance: ONABOTULINUMTOXINA
     Indication: Skin wrinkling
     Dosage: 5 UNITS, SINGLE
     Route: 030
     Dates: start: 20210109, end: 20210109
  5. BOTOX COSMETIC [Suspect]
     Active Substance: ONABOTULINUMTOXINA
     Dosage: 5 UNITS, SINGLE
     Route: 030
     Dates: start: 20201208, end: 20201208
  6. BOTOX COSMETIC [Suspect]
     Active Substance: ONABOTULINUMTOXINA
     Dosage: 10 UNITS, SINGLE
     Route: 030
     Dates: start: 20201208, end: 20201208
  7. BOTOX COSMETIC [Suspect]
     Active Substance: ONABOTULINUMTOXINA
     Dosage: 10 UNITS, SINGLE
     Route: 030
     Dates: start: 20201208, end: 20201208
  8. BOTOX COSMETIC [Suspect]
     Active Substance: ONABOTULINUMTOXINA
     Dosage: 5 UNITS, SINGLE
     Route: 030
     Dates: start: 20201208, end: 20201208
  9. BOTOX COSMETIC [Suspect]
     Active Substance: ONABOTULINUMTOXINA
     Dosage: 15 UNITS, SINGLE
     Route: 030
     Dates: start: 20211203, end: 20211203
  10. BOTOX COSMETIC [Suspect]
     Active Substance: ONABOTULINUMTOXINA
     Dosage: 5 UNITS, SINGLE
     Route: 030
     Dates: start: 20211203, end: 20211203
  11. VITRASE [Suspect]
     Active Substance: HYALURONIDASE, OVINE
     Indication: Skin wrinkling
     Dosage: UNK
     Route: 030
     Dates: start: 20220128

REACTIONS (8)
  - Pain [Unknown]
  - Paraesthesia [Unknown]
  - Facial paresis [Unknown]
  - Burning sensation [Unknown]
  - Acne [Unknown]
  - Discomfort [Unknown]
  - Skin tightness [Unknown]
  - Off label use [Unknown]

NARRATIVE: CASE EVENT DATE: 20211203
